FAERS Safety Report 6810610-X (Version None)
Quarter: 2010Q2

REPORT INFORMATION
  Report Type: 
  Country: None (occurrence: None)
  Receive Date: 20100625
  Receipt Date: 20100610
  Transmission Date: 20101027
  Serious: Yes (Other)
  Sender: FDA-Public Use
  Company Number: US-DEXPHARM-20100871

PATIENT
  Sex: Female
  Weight: 78 kg

DRUGS (17)
  1. OMEPRAZOLE [Suspect]
     Indication: DYSPEPSIA
     Dosage: 20 MG ONCE A DAY, ORAL
     Route: 048
     Dates: start: 20090601, end: 20100609
  2. OMEPRAZOLE [Suspect]
     Indication: DYSPEPSIA
     Dosage: 40 MG ONCE A DAY, ORAL
     Route: 048
     Dates: start: 20090601, end: 20100609
  3. ACTONEL [Concomitant]
  4. METFORMIN HCL [Concomitant]
  5. IRON [Concomitant]
  6. VITAMIN E [Concomitant]
  7. VITAMIN C [Concomitant]
  8. CALCIUM + VITAMIN D [Concomitant]
  9. BUMEX [Concomitant]
  10. PREDNISONE [Concomitant]
  11. ZOLOFT [Concomitant]
  12. ENULOSE [Concomitant]
  13. RIFAXIMIN [Concomitant]
  14. CLARITIN [Concomitant]
  15. PROVENTIL [Concomitant]
  16. THERACRAN [Concomitant]
  17. MUCINEX DM (DEXTROMETHORPHAN HYDROBROMIDE, GUAIFENESIN) [Concomitant]

REACTIONS (8)
  - ANAEMIA [None]
  - DRUG INEFFECTIVE [None]
  - DYSPNOEA [None]
  - GASTRIC HAEMORRHAGE [None]
  - HEPATIC CIRRHOSIS [None]
  - NAUSEA [None]
  - PRODUCT SUBSTITUTION ISSUE [None]
  - VOMITING [None]
